FAERS Safety Report 8169642-4 (Version None)
Quarter: 2012Q1

REPORT INFORMATION
  Report Type: 
  Country: None (occurrence: None)
  Receive Date: 20120228
  Receipt Date: 20120222
  Transmission Date: 20120608
  Serious: Yes (Other)
  Sender: FDA-Public Use
  Company Number: US-PFIZER INC-2011267013

PATIENT
  Sex: Female

DRUGS (2)
  1. CHANTIX [Suspect]
     Indication: SMOKING CESSATION THERAPY
     Dosage: UNK
     Dates: start: 20070901, end: 20071201
  2. CHANTIX [Suspect]
     Dosage: UNK
     Dates: start: 20090201, end: 20090401

REACTIONS (7)
  - SUICIDE ATTEMPT [None]
  - ABNORMAL DREAMS [None]
  - PANIC ATTACK [None]
  - DEPRESSION [None]
  - ANXIETY [None]
  - INTENTIONAL OVERDOSE [None]
  - AGGRESSION [None]
